FAERS Safety Report 17086904 (Version 2)
Quarter: 2019Q4

REPORT INFORMATION
  Report Type: Spontaneous
  Country: JP (occurrence: JP)
  Receive Date: 20191128
  Receipt Date: 20191203
  Transmission Date: 20200122
  Serious: Yes (Hospitalization)
  Sender: FDA-Public Use
  Company Number: JP-BRISTOL-MYERS SQUIBB COMPANY-BMS-2019-074838

PATIENT
  Sex: Female

DRUGS (1)
  1. OPDIVO [Suspect]
     Active Substance: NIVOLUMAB
     Indication: NON-SMALL CELL LUNG CANCER RECURRENT
     Dosage: UNK
     Route: 041
     Dates: end: 201909

REACTIONS (9)
  - Rash [Unknown]
  - Blood glucose increased [Unknown]
  - Drug eruption [Unknown]
  - Gamma-glutamyltransferase increased [Unknown]
  - Cholelithiasis [Unknown]
  - Glycosylated haemoglobin increased [Unknown]
  - Alanine aminotransferase increased [Unknown]
  - Photophobia [Unknown]
  - Aspartate aminotransferase increased [Unknown]

NARRATIVE: CASE EVENT DATE: 201910
